FAERS Safety Report 15686085 (Version 2)
Quarter: 2020Q1

REPORT INFORMATION
  Report Type: Spontaneous
  Country: US (occurrence: US)
  Receive Date: 20181204
  Receipt Date: 20200106
  Transmission Date: 20200409
  Serious: No
  Sender: FDA-Public Use
  Company Number: US-SA-2018SA328034

PATIENT
  Age: 54 Year
  Sex: Male

DRUGS (14)
  1. ASPIRIN. [Concomitant]
     Active Substance: ASPIRIN
  2. HYDROXYZINE [Concomitant]
     Active Substance: HYDROXYZINE HYDROCHLORIDE
  3. VITAMIN D [COLECALCIFEROL] [Concomitant]
     Active Substance: CHOLECALCIFEROL
  4. HYDROCODONE BITARTRATE AND ACETAMINOPHEN [Concomitant]
     Active Substance: ACETAMINOPHEN\HYDROCODONE BITARTRATE
  5. TESTOSTERON [TESTOSTERONE] [Concomitant]
  6. FLUTICASONE. [Concomitant]
     Active Substance: FLUTICASONE
  7. TRAMADOL. [Concomitant]
     Active Substance: TRAMADOL
  8. DOXEPIN [Concomitant]
     Active Substance: DOXEPIN
  9. MONTELUKAST [Concomitant]
     Active Substance: MONTELUKAST SODIUM
  10. CLOBETASOL [Concomitant]
     Active Substance: CLOBETASOL
  11. MELOXICAM. [Concomitant]
     Active Substance: MELOXICAM
  12. DUPIXENT [Suspect]
     Active Substance: DUPILUMAB
     Indication: DERMATITIS ATOPIC
     Dosage: 300 MG, QOW
     Route: 058
     Dates: start: 20180719
  13. TIZANIDINE. [Concomitant]
     Active Substance: TIZANIDINE
  14. ATORVASTATIN [Concomitant]
     Active Substance: ATORVASTATIN

REACTIONS (2)
  - Dermatitis atopic [Not Recovered/Not Resolved]
  - Arthralgia [Not Recovered/Not Resolved]

NARRATIVE: CASE EVENT DATE: 201911
